FAERS Safety Report 6899589-2 (Version None)
Quarter: 2010Q3

REPORT INFORMATION
  Report Type: 
  Country: None (occurrence: None)
  Receive Date: 20100729
  Receipt Date: 20100709
  Transmission Date: 20110219
  Serious: Yes (Hospitalization, Other)
  Sender: FDA-Public Use
  Company Number: 20100331

PATIENT
  Age: 3 Year
  Sex: Female

DRUGS (4)
  1. CEFTRIAXON [Suspect]
     Indication: VIRAL UPPER RESPIRATORY TRACT INFECTION
     Dosage: 50 MG/KG/DAY
     Route: 041
  2. SODIUM CHLORIDE [Suspect]
     Indication: VIRAL UPPER RESPIRATORY TRACT INFECTION
     Dosage: 75 ML/HOUR
     Route: 041
  3. DEXTROSE 5% [Suspect]
     Indication: FLUID REPLACEMENT
     Dosage: 75 ML/HOUR
  4. METHYLPREDNISOLONE SODIUM SUCCINATE [Concomitant]

REACTIONS (6)
  - BLOOD CREATINE PHOSPHOKINASE INCREASED [None]
  - COMPARTMENT SYNDROME [None]
  - DERMATITIS BULLOUS [None]
  - INJECTION SITE EXTRAVASATION [None]
  - METABOLIC ACIDOSIS [None]
  - WRIST FRACTURE [None]
